FAERS Safety Report 9288268 (Version 2)
Quarter: 2013Q4

REPORT INFORMATION
  Report Type: Spontaneous
  Country: BR (occurrence: BR)
  Receive Date: 20130514
  Receipt Date: 20131022
  Transmission Date: 20140711
  Serious: Yes (Hospitalization)
  Sender: FDA-Public Use
  Company Number: PHHY2013BR046990

PATIENT
  Age: 28 Year
  Sex: Female

DRUGS (4)
  1. ONBREZ [Suspect]
     Dosage: 150 UG, UNK
  2. FORASEQ [Suspect]
  3. DAXAS [Suspect]
     Dosage: UNK
  4. SPIRIVA [Suspect]
     Dosage: UNK

REACTIONS (3)
  - Cyanosis [Unknown]
  - Bronchospasm [Unknown]
  - Cough [Unknown]
